FAERS Safety Report 7338021-1 (Version None)
Quarter: 2011Q1

REPORT INFORMATION
  Report Type: 
  Country: None (occurrence: None)
  Receive Date: 20110210
  Receipt Date: 20101104
  Transmission Date: 20110831
  Serious: No
  Sender: FDA-Public Use
  Company Number: 1000017170

PATIENT
  Age: 60 Year
  Sex: Female

DRUGS (8)
  1. SAVELLA [Suspect]
     Indication: FIBROMYALGIA
     Dosage: 12.5 MG (12.5 MG, 1 IN 1 D), ORAL, 25 MG (12.5 MG, 2 IN 1 D), ORAL
     Route: 048
     Dates: start: 20100901, end: 20100901
  2. SAVELLA [Suspect]
     Indication: FIBROMYALGIA
     Dosage: 12.5 MG (12.5 MG, 1 IN 1 D), ORAL, 25 MG (12.5 MG, 2 IN 1 D), ORAL
     Route: 048
     Dates: start: 20100901, end: 20100901
  3. SAVELLA [Suspect]
     Indication: FIBROMYALGIA
     Dosage: 50 MG (25 MG, 2 IN 1 D), ORAL, 25 MG (25 MG, 1 IN 1 D), ORAL, 12.5 MG (12.5 MG, 1 IN 1 D), ORAL
     Route: 048
     Dates: start: 20101030, end: 20101103
  4. SAVELLA [Suspect]
     Indication: FIBROMYALGIA
     Dosage: 50 MG (25 MG, 2 IN 1 D), ORAL, 25 MG (25 MG, 1 IN 1 D), ORAL, 12.5 MG (12.5 MG, 1 IN 1 D), ORAL
     Route: 048
     Dates: start: 20100901, end: 20101027
  5. SAVELLA [Suspect]
     Indication: FIBROMYALGIA
     Dosage: 50 MG (25 MG, 2 IN 1 D), ORAL, 25 MG (25 MG, 1 IN 1 D), ORAL, 12.5 MG (12.5 MG, 1 IN 1 D), ORAL
     Route: 048
     Dates: start: 20101028, end: 20101029
  6. PREMARIN (CONJUGATED ESTROGENS) (CONJUGATED ESTROGENS) [Concomitant]
  7. ULTRACET (TRAMADOL, ACETAMINOPHEN) (TRAMADOL, ACETAMINOPHEN) [Concomitant]
  8. MULTIVITAMINS (MULTIVITAMINS) (MULTIVITAMINS) [Concomitant]

REACTIONS (3)
  - HYPERHIDROSIS [None]
  - SKIN LESION [None]
  - PRURITUS [None]
